FAERS Safety Report 6026629-5 (Version None)
Quarter: 2008Q4

REPORT INFORMATION
  Report Type: 
  Country: None (occurrence: None)
  Receive Date: 20081231
  Receipt Date: 20081219
  Transmission Date: 20090506
  Serious: Yes (Hospitalization)
  Sender: FDA-Public Use
  Company Number: CIP08002755

PATIENT
  Sex: Female

DRUGS (1)
  1. ACTONEL [Suspect]
     Dosage: ORAL
     Route: 048

REACTIONS (5)
  - BURN OF INTERNAL ORGANS [None]
  - ODYNOPHAGIA [None]
  - OESOPHAGEAL RUPTURE [None]
  - OESOPHAGEAL STENOSIS [None]
  - POST PROCEDURAL COMPLICATION [None]
